FAERS Safety Report 24568765 (Version 2)
Quarter: 2024Q4

REPORT INFORMATION
  Report Type: Spontaneous
  Country: BE (occurrence: BE)
  Receive Date: 20241031
  Receipt Date: 20241108
  Transmission Date: 20250114
  Serious: Yes (Hospitalization)
  Sender: Karo Pharma
  Company Number: BE-Karo Pharma-2164162

PATIENT
  Age: 49 Year
  Sex: Female

DRUGS (4)
  1. TERBINAFINE HYDROCHLORIDE [Suspect]
     Active Substance: TERBINAFINE HYDROCHLORIDE
     Indication: Onychomycosis
  2. Tibolone for postmenopausal complaints [Menopausal symptoms] [Concomitant]
  3. ASPIRIN [Concomitant]
     Active Substance: ASPIRIN
  4. MONTELUKAST [Concomitant]
     Active Substance: MONTELUKAST

REACTIONS (9)
  - Parotitis [Unknown]
  - Inflammation [Unknown]
  - Cough [Unknown]
  - Chest pain [Unknown]
  - Pyrexia [Unknown]
  - Oropharyngeal pain [Unknown]
  - Parotid gland enlargement [Unknown]
  - Agranulocytosis [Unknown]
  - Pericarditis [Unknown]
